FAERS Safety Report 23838435 (Version 1)
Quarter: 2024Q2

REPORT INFORMATION
  Report Type: Report from Study
  Country: DE (occurrence: DE)
  Receive Date: 20240509
  Receipt Date: 20240509
  Transmission Date: 20240716
  Serious: Yes (Death, Hospitalization, Other)
  Sender: FDA-Public Use
  Company Number: DE-EMA-DD-20191024-jain_h1-085236

PATIENT
  Age: 56 Year
  Sex: Female

DRUGS (8)
  1. METHOTREXATE [Suspect]
     Active Substance: METHOTREXATE
     Dosage: 2.500MG
     Route: 065
  2. METHOTREXATE [Suspect]
     Active Substance: METHOTREXATE
     Dosage: 5 MG
     Route: 065
     Dates: start: 20161209
  3. METHOTREXATE [Suspect]
     Active Substance: METHOTREXATE
     Dosage: 5 MG
     Route: 065
     Dates: start: 20170315
  4. METHOTREXATE [Suspect]
     Active Substance: METHOTREXATE
     Dosage: 5 MG
     Route: 065
     Dates: start: 20180316
  5. METHOTREXATE [Suspect]
     Active Substance: METHOTREXATE
     Dosage: 5 MG
     Route: 065
     Dates: start: 20180825
  6. METHOTREXATE [Suspect]
     Active Substance: METHOTREXATE
     Indication: Rheumatoid arthritis
     Dosage: 50 MG
     Route: 065
     Dates: start: 20160902
  7. MABTHERA [Suspect]
     Active Substance: RITUXIMAB
     Indication: Product used for unknown indication
     Dosage: 500 MG, UNK
     Route: 065
     Dates: start: 201608
  8. RITUXIMAB [Suspect]
     Active Substance: RITUXIMAB
     Indication: Rheumatoid arthritis
     Dosage: 500 MG
     Route: 065
     Dates: start: 201608

REACTIONS (11)
  - Death [Fatal]
  - Hypertensive crisis [Recovered/Resolved]
  - Rheumatoid arthritis [Recovered/Resolved]
  - Deep vein thrombosis [Unknown]
  - Cerebral infarction [Unknown]
  - Subclavian artery occlusion [Unknown]
  - Fatigue [Unknown]
  - Nasopharyngitis [Unknown]
  - Diarrhoea [Unknown]
  - Tachycardia [Unknown]
  - Sinusitis [Not Recovered/Not Resolved]

NARRATIVE: CASE EVENT DATE: 20170415
